FAERS Safety Report 19949346 (Version 1)
Quarter: 2021Q4

REPORT INFORMATION
  Report Type: Report from Study
  Country: FR (occurrence: FR)
  Receive Date: 20211013
  Receipt Date: 20211013
  Transmission Date: 20220303
  Serious: Yes (Hospitalization)
  Sender: FDA-Public Use
  Company Number: FR-GLAXOSMITHKLINE-FR2021GSK009635

PATIENT
  Age: 56 Year
  Sex: Female
  Weight: 50 kg

DRUGS (11)
  1. NIRAPARIB [Suspect]
     Active Substance: NIRAPARIB
     Indication: Ovarian cancer
     Dosage: 200 MG
     Dates: start: 20201223, end: 20210113
  2. DOSTARLIMAB [Suspect]
     Active Substance: DOSTARLIMAB
     Indication: Ovarian cancer
     Dosage: 500 MG
     Dates: start: 20200703, end: 20200703
  3. DOSTARLIMAB [Suspect]
     Active Substance: DOSTARLIMAB
     Dosage: 1000 MG
     Dates: start: 20201203, end: 20201203
  4. CARBOPLATIN [Suspect]
     Active Substance: CARBOPLATIN
     Dosage: 530 MG
     Route: 042
     Dates: start: 20200612, end: 20200612
  5. CARBOPLATIN [Suspect]
     Active Substance: CARBOPLATIN
     Dosage: 550 MG
     Route: 042
     Dates: start: 20201113, end: 20201113
  6. PACLITAXEL [Suspect]
     Active Substance: PACLITAXEL
     Indication: Ovarian cancer
     Dosage: 270 MG
     Route: 042
     Dates: start: 20200612, end: 20200612
  7. PACLITAXEL [Suspect]
     Active Substance: PACLITAXEL
     Dosage: 260 MG
     Route: 042
     Dates: start: 20201113, end: 20201113
  8. BEVACIZUMAB [Suspect]
     Active Substance: BEVACIZUMAB
     Indication: Ovarian cancer
     Dosage: 390 MG
     Route: 042
     Dates: start: 20201015, end: 20201015
  9. BEVACIZUMAB [Suspect]
     Active Substance: BEVACIZUMAB
     Dosage: 375 MG
     Route: 042
     Dates: start: 20201223, end: 20201223
  10. CISPLATIN [Concomitant]
     Active Substance: CISPLATIN
     Dosage: UNK
  11. DOCETAXEL [Concomitant]
     Active Substance: DOCETAXEL
     Dosage: UNK

REACTIONS (1)
  - Thrombocytopenia [Recovered/Resolved]

NARRATIVE: CASE EVENT DATE: 20210113
